FAERS Safety Report 8601789 (Version 3)
Quarter: 2012Q4

REPORT INFORMATION
  Report Type: 
  Country: US (occurrence: US)
  Receive Date: 20120606
  Receipt Date: 20121101
  Transmission Date: 20130627
  Serious: Yes (Other)
  Sender: FDA-Public Use
  Company Number: US-BAYER-2012-056021

PATIENT
  Age: 48 Year
  Sex: Female

DRUGS (3)
  1. MIRENA [Suspect]
     Indication: MENORRHAGIA
     Dosage: 20 mcg/24hr, CONT
     Route: 015
     Dates: start: 20120111, end: 20120602
  2. MIRENA [Suspect]
     Indication: FIBROIDS
     Dosage: 20 mcg/24hr, CONT
     Route: 015
     Dates: start: 20120822, end: 20120826
  3. MIRENA [Suspect]
     Indication: CONTRACEPTION

REACTIONS (5)
  - Vaginal haemorrhage [None]
  - Device expulsion [None]
  - Pain [None]
  - Device expulsion [None]
  - Drug ineffective [None]
